FAERS Safety Report 6636231-X (Version None)
Quarter: 2010Q1

REPORT INFORMATION
  Report Type: 
  Country: None (occurrence: None)
  Receive Date: 20100316
  Receipt Date: 20100304
  Transmission Date: 20100710
  Serious: Yes (Disabling)
  Sender: FDA-Public Use
  Company Number: CH-PFIZER INC-2010028539

PATIENT
  Age: 32 Year
  Sex: Male

DRUGS (19)
  1. VFEND [Suspect]
     Indication: BRONCHOPULMONARY ASPERGILLOSIS
     Dosage: 200 MG, 2X/DAY
     Dates: start: 20091101
  2. PROGRAF [Suspect]
     Indication: IMMUNOSUPPRESSION
     Dosage: 2.5 MG, /DAY
     Dates: start: 20091101, end: 20091101
  3. PREDNISONE [Concomitant]
     Dosage: 7.5 MG, 1X/DAY
  4. CELLCEPT [Concomitant]
     Dosage: 500 MG, 2X/DAY
  5. BELOC ZOK [Concomitant]
     Dosage: 75 MG, 1X/DAY
  6. RANITIDINE [Concomitant]
     Dosage: 300 MG, 1X/DAY
  7. REMERON [Concomitant]
     Dosage: 15 MG, 1X/DAY
  8. LEUCOVORIN CALCIUM [Concomitant]
     Dosage: 15 MG, 4X/WEEK
  9. VI-DE 3 [Concomitant]
     Dosage: 30 GTT, WEEKLY
  10. ASPIRIN [Concomitant]
     Dosage: 100 MG, 1X/DAY
  11. BACTRIM [Concomitant]
     Dosage: 1 DF, 3X/WEEK
  12. DAFALGAN [Concomitant]
     Dosage: 1 G, 3X/DAY
  13. SINTROM [Concomitant]
     Dosage: UNK
  14. INSULIN HUMAN [Concomitant]
  15. TEMGESIC ^ESSEX PHARMA^ [Concomitant]
     Dosage: 0.2 MG, 4X/DAY
  16. CLONAZEPAM [Concomitant]
     Dosage: 0.5 MG, 1X/DAY
  17. NEURONTIN [Concomitant]
     Dosage: 100 MG, 3X/DAY
  18. BUSCOPAN [Concomitant]
     Dosage: 10 MG, 3X/DAY
  19. LAXOBERON [Concomitant]
     Dosage: UNK

REACTIONS (1)
  - PERIPHERAL SENSORY NEUROPATHY [None]
